FAERS Safety Report 23106214 (Version 2)
Quarter: 2023Q4

REPORT INFORMATION
  Report Type: Report from Study
  Country: BR (occurrence: BR)
  Receive Date: 20231025
  Receipt Date: 20231103
  Transmission Date: 20240110
  Serious: Yes (Hospitalization)
  Sender: FDA-Public Use
  Company Number: BR-Eisai-EC-2023-151076

PATIENT
  Age: 56 Year
  Sex: Male
  Weight: 74.5 kg

DRUGS (5)
  1. LENVATINIB [Suspect]
     Active Substance: LENVATINIB
     Indication: Clear cell renal cell carcinoma
     Route: 048
     Dates: start: 20230530
  2. PEMBROLIZUMAB [Suspect]
     Active Substance: PEMBROLIZUMAB
     Indication: Clear cell renal cell carcinoma
     Dates: start: 20230530, end: 20231003
  3. LEVOTHYROXINE SODIUM [Concomitant]
     Active Substance: LEVOTHYROXINE SODIUM
     Dates: start: 20230802
  4. DIPYRONE [Concomitant]
     Active Substance: DIPYRONE
     Dates: start: 20231003, end: 20231015
  5. UREA [Concomitant]
     Active Substance: UREA
     Dates: start: 20231003

REACTIONS (1)
  - Headache [Recovering/Resolving]

NARRATIVE: CASE EVENT DATE: 20231015
